FAERS Safety Report 4829793-6 (Version None)
Quarter: 2005Q4

REPORT INFORMATION
  Report Type: 
  Country: None (occurrence: None)
  Receive Date: 20051028
  Receipt Date: 20050712
  Transmission Date: 20060501
  Serious: No
  Sender: FDA-Public Use
  Company Number: COT_0137_2005

PATIENT
  Age: 26 Year
  Sex: Female
  Weight: 49.8957 kg

DRUGS (8)
  1. VENTAVIS [Suspect]
     Indication: PULMONARY HYPERTENSION
     Dosage: 5 MCG IH
     Route: 055
  2. VENTAVIS [Suspect]
     Indication: PULMONARY HYPERTENSION
     Dosage: 2.5 MCG 6XD IH
     Route: 055
  3. TRACLEER [Concomitant]
  4. PREDNISONE [Concomitant]
  5. CELLCEPT [Concomitant]
  6. COUMADIN [Concomitant]
  7. ORTHO TRI-CYCLEN [Concomitant]
  8. PLAQUENIL [Concomitant]

REACTIONS (5)
  - FATIGUE [None]
  - FLUSHING [None]
  - HEADACHE [None]
  - NAUSEA [None]
  - SYNCOPE [None]
